FAERS Safety Report 4913533-6 (Version None)
Quarter: 2006Q1

REPORT INFORMATION
  Report Type: 
  Country: None (occurrence: None)
  Receive Date: 20060210
  Receipt Date: 20060130
  Transmission Date: 20060701
  Serious: No
  Sender: FDA-Public Use
  Company Number: 06-0015PO

PATIENT
  Age: 52 Year
  Sex: Female

DRUGS (3)
  1. PONTAL                         (MEFENAMIC ACID) [Suspect]
     Indication: NASOPHARYNGITIS
     Dosage: 250MG, DAILY
     Dates: start: 19850101
  2. SELBEX                       (TEPRENONE) [Suspect]
     Indication: NASOPHARYNGITIS
  3. LEVOFLOXACIN [Concomitant]

REACTIONS (5)
  - ANAPHYLACTIC SHOCK [None]
  - ASTHENIA [None]
  - ENTEROCOLITIS [None]
  - LYMPHOCYTE STIMULATION TEST POSITIVE [None]
  - NASOPHARYNGITIS [None]
